FAERS Safety Report 8084747-4 (Version None)
Quarter: 2012Q1

REPORT INFORMATION
  Report Type: 
  Country: None (occurrence: None)
  Receive Date: 20120128
  Receipt Date: 20110316
  Transmission Date: 20120608
  Serious: No
  Sender: FDA-Public Use
  Company Number: US-ABBOTT-11P-163-0712283-00

PATIENT
  Age: 50 Year
  Sex: Female

DRUGS (9)
  1. HUMIRA [Suspect]
     Indication: PSORIATIC ARTHROPATHY
     Dates: start: 20110307
  2. ESTRATEST [Concomitant]
     Indication: HORMONE REPLACEMENT THERAPY
  3. CALCIUM +D [Concomitant]
     Indication: SUPPLEMENTATION THERAPY
  4. NIACIN [Concomitant]
     Indication: PRODUCT USED FOR UNKNOWN INDICATION
  5. MULTI-VITAMIN [Concomitant]
     Indication: SUPPLEMENTATION THERAPY
  6. FISH OIL [Concomitant]
     Indication: SUPPLEMENTATION THERAPY
  7. ATENOLOL [Concomitant]
     Indication: MITRAL VALVE PROLAPSE
  8. METHOTREXATE [Concomitant]
     Indication: PSORIATIC ARTHROPATHY
     Dosage: 3 TABS WEEKLY
  9. PROTONIX [Concomitant]
     Indication: GASTROOESOPHAGEAL REFLUX DISEASE

REACTIONS (1)
  - CHEST PAIN [None]
